FAERS Safety Report 12144794 (Version 1)
Quarter: 2016Q1

REPORT INFORMATION
  Report Type: Spontaneous
  Country: US (occurrence: None)
  Receive Date: 20160303
  Receipt Date: 20160303
  Transmission Date: 20160526
  Serious: Yes (Life-Threatening, Hospitalization, Disabling, Other)
  Sender: FDA-Public Use
  Company Number: None

PATIENT
  Age: 62 Year
  Sex: Female
  Weight: 58.97 kg

DRUGS (1)
  1. ZIPSOR [Suspect]
     Active Substance: DICLOFENAC POTASSIUM
     Indication: PAIN IN EXTREMITY
     Dosage: 1 CAP. 4 X PER DAY
     Route: 048
     Dates: start: 20160210, end: 20160224

REACTIONS (5)
  - Confusional state [None]
  - Gastrointestinal haemorrhage [None]
  - Vomiting [None]
  - Fear [None]
  - Amnesia [None]

NARRATIVE: CASE EVENT DATE: 20160224
